FAERS Safety Report 9071704 (Version 1)
Quarter: 2013Q1

REPORT INFORMATION
  Report Type: Spontaneous
  Country: US (occurrence: US)
  Receive Date: 20130206
  Receipt Date: 20130206
  Transmission Date: 20140127
  Serious: No
  Sender: FDA-Public Use
  Company Number: US-ALLERGAN-1213344US

PATIENT
  Sex: Male

DRUGS (2)
  1. RESTASIS? [Suspect]
     Indication: DRY EYE
     Dosage: 2 GTT, BID
     Route: 047
     Dates: start: 201208
  2. SYSTANE [Concomitant]
     Indication: EYE LUBRICATION THERAPY
     Dosage: 2 GTT, BID
     Route: 047

REACTIONS (4)
  - Incorrect dose administered [Unknown]
  - Eye irritation [Recovering/Resolving]
  - Eye irritation [Unknown]
  - Dry eye [Unknown]
